FAERS Safety Report 8783206 (Version 1)
Quarter: 2012Q4

REPORT INFORMATION
  Report Type: 
  Country: GB (occurrence: GB)
  Receive Date: 20120913
  Receipt Date: 20120913
  Transmission Date: 20130627
  Serious: Yes (Other)
  Sender: FDA-Public Use
  Company Number: GB-TEVA-357215ISR

PATIENT
  Age: 50 Year
  Sex: Male

DRUGS (6)
  1. METFORMIN [Suspect]
     Indication: DIABETES MELLITUS
     Route: 048
     Dates: start: 19980514, end: 20030207
  2. CANDESARTAN [Concomitant]
  3. SIMVASTATIN [Concomitant]
  4. QUININE SULPHATE [Concomitant]
  5. BECONASE AQUEOUS [Concomitant]
  6. VITAMIN AND MINERAL SUPPLEMENT [Concomitant]

REACTIONS (7)
  - Cardiac disorder [Recovered/Resolved with Sequelae]
  - Diarrhoea [Recovered/Resolved]
  - Abdominal distension [Recovered/Resolved with Sequelae]
  - Decreased appetite [Recovered/Resolved]
  - Abdominal pain upper [Recovered/Resolved]
  - Weight increased [Unknown]
  - Condition aggravated [Unknown]
